FAERS Safety Report 20220117 (Version 5)
Quarter: 2022Q2

REPORT INFORMATION
  Report Type: Report from Study
  Country: CA (occurrence: CA)
  Receive Date: 20211222
  Receipt Date: 20220620
  Transmission Date: 20220720
  Serious: Yes (Hospitalization, Other)
  Sender: FDA-Public Use
  Company Number: CA-JNJFOC-20211240981

PATIENT
  Age: 51 Year
  Sex: Female
  Weight: 138 kg

DRUGS (2)
  1. REMICADE [Suspect]
     Active Substance: INFLIXIMAB
     Indication: Crohn^s disease
     Route: 041
  2. LASIX [Concomitant]
     Active Substance: FUROSEMIDE
     Indication: Product used for unknown indication
     Dosage: DOSE INCREASED
     Route: 065

REACTIONS (5)
  - Sepsis [Unknown]
  - Pleural effusion [Unknown]
  - Cardiac failure [Unknown]
  - Deep vein thrombosis [Unknown]
  - Hyperparathyroidism [Recovering/Resolving]

NARRATIVE: CASE EVENT DATE: 20211101
